FAERS Safety Report 13449881 (Version 1)
Quarter: 2017Q2

REPORT INFORMATION
  Report Type: Spontaneous
  Country: US (occurrence: US)
  Receive Date: 20170417
  Receipt Date: 20170417
  Transmission Date: 20170830
  Serious: No
  Sender: FDA-Public Use
  Company Number: US-BION-20160198

PATIENT
  Age: 77 Year
  Sex: Male
  Weight: 90.72 kg

DRUGS (4)
  1. FLONASE [Concomitant]
     Active Substance: FLUTICASONE PROPIONATE
  2. UNKNOWN BLOOD PRESSURE MEDICATION [Concomitant]
     Active Substance: UNSPECIFIED INGREDIENT
     Indication: ARTHRALGIA
  3. ALEVE [Suspect]
     Active Substance: NAPROXEN SODIUM
     Dosage: I LIQ GEL CAP ONCE DAILY
     Route: 048
  4. ALEVE [Suspect]
     Active Substance: NAPROXEN SODIUM
     Dosage: 1 DOSAGE FORM TAKEN ONCE DAILY
     Route: 048

REACTIONS (5)
  - Abdominal discomfort [Recovered/Resolved]
  - Expired product administered [Unknown]
  - Flatulence [Recovered/Resolved]
  - Incorrect drug administration duration [Unknown]
  - Drug effect incomplete [Unknown]
